FAERS Safety Report 7621409-9 (Version None)
Quarter: 2011Q3

REPORT INFORMATION
  Report Type: 
  Country: None (occurrence: None)
  Receive Date: 20110719
  Receipt Date: 20110713
  Transmission Date: 20111222
  Serious: Yes (Hospitalization, Other)
  Sender: FDA-Public Use
  Company Number: BE-ABBOTT-11P-013-0838607-00

PATIENT
  Sex: Female

DRUGS (3)
  1. HUMIRA [Suspect]
     Indication: ANKYLOSING SPONDYLITIS
     Dates: start: 20100216, end: 20110518
  2. PIROXICAM [Concomitant]
     Indication: PRODUCT USED FOR UNKNOWN INDICATION
     Dosage: SPORADIC
  3. OMEPRAZOLE [Concomitant]
     Indication: PRODUCT USED FOR UNKNOWN INDICATION
     Dosage: 20 MG DAILY

REACTIONS (8)
  - ESCHERICHIA URINARY TRACT INFECTION [None]
  - UTERINE NEOPLASM [None]
  - HYPOCALCAEMIA [None]
  - GASTROPARESIS POSTOPERATIVE [None]
  - HAEMORRHAGIC ANAEMIA [None]
  - OVARIAN EPITHELIAL CANCER [None]
  - BILIARY CYST [None]
  - HYDRONEPHROSIS [None]
